FAERS Safety Report 25428388 (Version 1)
Quarter: 2025Q2

REPORT INFORMATION
  Report Type: Spontaneous
  Country: US (occurrence: None)
  Receive Date: 20250611
  Receipt Date: 20250611
  Transmission Date: 20250716
  Serious: Yes (Other)
  Sender: FDA-CTU
  Company Number: None

PATIENT
  Age: 16 Year
  Sex: Female
  Weight: 116.3 kg

DRUGS (16)
  1. RYLAZE [Suspect]
     Active Substance: ASPARAGINASE ERWINIA CHRYSANTHEMI (RECOMBINANT)-RYWN
     Route: 030
     Dates: start: 20250420, end: 20250427
  2. Acetaminophen 325 mg tablet [Concomitant]
     Dates: start: 20250420, end: 20250420
  3. Aprepitant 80 mg capsule [Concomitant]
     Dates: start: 20250418, end: 20250427
  4. Cytarabine IV infusion [Concomitant]
     Dates: start: 20250418, end: 20250427
  5. Dexamethasone 0.1% opth drops [Concomitant]
     Dates: start: 20250418, end: 20250428
  6. diphenhydramine 25 mg tablet [Concomitant]
     Dates: start: 20250420, end: 20250427
  7. Famotidine 20 mg tablet [Concomitant]
     Dates: start: 20250417
  8. inuslin glargine [Concomitant]
     Dates: start: 20250417
  9. INSULIN LISPRO [Concomitant]
     Active Substance: INSULIN LISPRO
     Dates: start: 20250417
  10. levocarnitine 100 mg/mL liquid [Concomitant]
     Dates: start: 20250418, end: 20250514
  11. LEVOFLOXACIN [Concomitant]
     Active Substance: LEVOFLOXACIN
     Dates: start: 20250418, end: 20250605
  12. magnesium oxide 400 mg tablet [Concomitant]
     Dates: start: 20250417
  13. norethindrone 5 mg tablet [Concomitant]
     Dates: start: 20250417
  14. sertraline 50 mg tablet [Concomitant]
     Dates: start: 20250417
  15. Sulfamethoxazole/Trimethoprim 800-160 mg tablet [Concomitant]
     Dates: start: 20250417
  16. LORAZEPAM [Concomitant]
     Active Substance: LORAZEPAM
     Dates: start: 20250419, end: 20250429

REACTIONS (5)
  - Vision blurred [None]
  - Eye haemorrhage [None]
  - Retinal haemorrhage [None]
  - Optic nerve sheath haemorrhage [None]
  - Vitreous floaters [None]

NARRATIVE: CASE EVENT DATE: 20250512
